FAERS Safety Report 9233588 (Version 3)
Quarter: 2013Q4

REPORT INFORMATION
  Report Type: Spontaneous
  Country: US (occurrence: None)
  Receive Date: 20130412
  Receipt Date: 20131018
  Transmission Date: 20140711
  Serious: Yes (Hospitalization)
  Sender: FDA-Public Use
  Company Number: 1664053

PATIENT
  Sex: Male

DRUGS (2)
  1. PIPERACILLIN/TAZOBACTAM [Suspect]
     Indication: INFECTION
     Dosage: 1 BAG, 1 DAY, INTRAVENOUS DRIP
     Dates: start: 20130209
  2. GENTAMYCIN /00047101/ [Concomitant]

REACTIONS (9)
  - Product quality issue [None]
  - Product deposit [None]
  - Transient ischaemic attack [None]
  - Product deposit [None]
  - Infection [None]
  - Wrong technique in drug usage process [None]
  - Incorrect product storage [None]
  - Product colour issue [None]
  - Poor quality drug administered [None]
